FAERS Safety Report 9186587 (Version 1)
Quarter: 2013Q1

REPORT INFORMATION
  Report Type: Spontaneous
  Country: MX (occurrence: MX)
  Receive Date: 20130325
  Receipt Date: 20130325
  Transmission Date: 20140127
  Serious: Yes (Other)
  Sender: FDA-Public Use
  Company Number: MX-AMGEN-MEXSP2013019371

PATIENT
  Age: 58 Year
  Sex: Female

DRUGS (2)
  1. MIMPARA [Suspect]
     Indication: HYPERPARATHYROIDISM SECONDARY
     Dosage: UNK
  2. ANTIBIOTICS [Concomitant]

REACTIONS (3)
  - Hepatomegaly [Unknown]
  - Hyperbilirubinaemia [Not Recovered/Not Resolved]
  - Respiratory tract infection [Unknown]
